FAERS Safety Report 11447006 (Version 2)
Quarter: 2017Q1

REPORT INFORMATION
  Report Type: Report from Study
  Country: US (occurrence: US)
  Receive Date: 20150902
  Receipt Date: 20170209
  Transmission Date: 20170428
  Serious: Yes (Other)
  Sender: FDA-Public Use
  Company Number: US-GILEAD-2015-0169975

PATIENT
  Age: 49 Year
  Sex: Female

DRUGS (5)
  1. AMBRISENTAN [Suspect]
     Active Substance: AMBRISENTAN
     Indication: PULMONARY HYPERTENSION
     Dosage: 10 MG, QD
     Route: 065
     Dates: start: 20150112
  2. UPTRAVI [Concomitant]
     Active Substance: SELEXIPAG
  3. ADEMPAS [Concomitant]
     Active Substance: RIOCIGUAT
  4. CIPRO [Concomitant]
     Active Substance: CIPROFLOXACIN HYDROCHLORIDE
  5. XARELTO [Concomitant]
     Active Substance: RIVAROXABAN

REACTIONS (7)
  - Pulmonary thrombosis [Recovered/Resolved]
  - Gastrooesophageal reflux disease [Unknown]
  - Varicose vein [Not Recovered/Not Resolved]
  - Gastric varices [Unknown]
  - Systemic lupus erythematosus [Unknown]
  - Thrombosis [Recovered/Resolved]
  - Factor V deficiency [Unknown]
